FAERS Safety Report 9840754 (Version 1)
Quarter: 2013Q4

REPORT INFORMATION
  Report Type: Spontaneous
  Country: US (occurrence: None)
  Receive Date: 20131211
  Receipt Date: 20131211
  Transmission Date: 20140711
  Serious: Yes (Other)
  Sender: FDA-Public Use
  Company Number: SPV1-2012-01198

PATIENT
  Age: 5 Year
  Sex: Male

DRUGS (2)
  1. VYVANSE [Suspect]
     Indication: PRODUCT USED FOR UNKNOWN INDICATION
  2. MIRTAZAPINE (MIRTAZAPINE) [Concomitant]

REACTIONS (1)
  - Hallucination, visual [None]
